FAERS Safety Report 10234447 (Version 1)
Quarter: 2014Q2

REPORT INFORMATION
  Report Type: Spontaneous
  Country: GB (occurrence: GB)
  Receive Date: 20140613
  Receipt Date: 20140613
  Transmission Date: 20141212
  Serious: Yes (Disabling)
  Sender: FDA-Public Use
  Company Number: GB-DRREDDYS-GER/UKI/14/0040970

PATIENT
  Age: 6 Year
  Sex: Male
  Weight: 40 kg

DRUGS (2)
  1. MONTELUKAST [Suspect]
     Indication: PRODUCT USED FOR UNKNOWN INDICATION
     Dates: start: 20140221, end: 20140321
  2. SALBUTAMOL [Concomitant]
     Indication: PRODUCT USED FOR UNKNOWN INDICATION
     Dates: start: 20140221, end: 20140321

REACTIONS (2)
  - Depressed mood [Unknown]
  - Panic attack [Recovered/Resolved]
